FAERS Safety Report 20394576 (Version 1)
Quarter: 2022Q1

REPORT INFORMATION
  Report Type: Report from Study
  Country: CA (occurrence: CA)
  Receive Date: 20220129
  Receipt Date: 20220129
  Transmission Date: 20220423
  Serious: Yes (Other)
  Sender: FDA-Public Use
  Company Number: CA-ABBVIE-22K-028-4256024-00

PATIENT
  Age: 72 Year
  Sex: Male

DRUGS (1)
  1. LUPRON DEPOT [Suspect]
     Active Substance: LEUPROLIDE ACETATE
     Indication: Prostate cancer
     Route: 030
     Dates: start: 20200712

REACTIONS (5)
  - Shoulder arthroplasty [Unknown]
  - Hypothyroidism [Unknown]
  - Back pain [Unknown]
  - Tachycardia [Unknown]
  - Oedema peripheral [Unknown]

NARRATIVE: CASE EVENT DATE: 20211112
